FAERS Safety Report 11447200 (Version 1)
Quarter: 2015Q3

REPORT INFORMATION
  Report Type: Report from Study
  Country: MX (occurrence: MX)
  Receive Date: 20150902
  Receipt Date: 20150902
  Transmission Date: 20151125
  Serious: Yes (Hospitalization, Disabling, Other)
  Sender: FDA-Public Use
  Company Number: MX-BAYER-2015-373381

PATIENT
  Age: 38 Year
  Sex: Female

DRUGS (3)
  1. PARACETAMOL [Concomitant]
     Active Substance: ACETAMINOPHEN
     Indication: PREMEDICATION
     Dosage: UNK
  2. BETAFERON [Suspect]
     Active Substance: INTERFERON BETA-1B
     Indication: MULTIPLE SCLEROSIS
     Dosage: 1 DF, QOD
     Route: 058
  3. PREDNISOLONE. [Concomitant]
     Active Substance: PREDNISOLONE

REACTIONS (7)
  - Hypersensitivity [Unknown]
  - Pyrexia [Unknown]
  - Application site discolouration [Unknown]
  - Injection site exfoliation [None]
  - Multiple sclerosis relapse [None]
  - Abasia [None]
  - Chills [Unknown]

NARRATIVE: CASE EVENT DATE: 2015
